FAERS Safety Report 9767113 (Version 1)
Quarter: 2013Q4

REPORT INFORMATION
  Report Type: Spontaneous
  Country: US (occurrence: None)
  Receive Date: 20131216
  Receipt Date: 20131216
  Transmission Date: 20140711
  Serious: Yes (Hospitalization)
  Sender: FDA-Public Use
  Company Number: None

PATIENT
  Age: 21 Year
  Sex: Female
  Weight: 63.2 kg

DRUGS (6)
  1. CYTARABINE [Suspect]
     Dates: end: 20131128
  2. DAUNORUBICIN [Suspect]
     Dates: end: 20131205
  3. METHOTREXATE [Suspect]
     Dates: end: 20131205
  4. PEG-L-ASPARAGINASE (K-H) [Suspect]
     Dates: end: 20131201
  5. PREDNISONE [Suspect]
     Dates: end: 20131207
  6. VINCRISTINE SULFATE [Suspect]
     Dates: end: 20131205

REACTIONS (7)
  - Pyrexia [None]
  - Abdominal pain [None]
  - Constipation [None]
  - Hypotension [None]
  - Septic shock [None]
  - Neutropenic colitis [None]
  - Pseudomonas test positive [None]
